FAERS Safety Report 8268326-1 (Version None)
Quarter: 2012Q1

REPORT INFORMATION
  Report Type: 
  Country: None (occurrence: None)
  Receive Date: 20120327
  Receipt Date: 20100406
  Transmission Date: 20120608
  Serious: Yes (Other)
  Sender: FDA-Public Use
  Company Number: PHHY2010US21681

PATIENT
  Age: 81 Year
  Sex: Female

DRUGS (1)
  1. GLEEVEC [Suspect]
     Dosage: 400 MG, QD, ORAL
     Route: 048
     Dates: start: 20100101, end: 20100331

REACTIONS (5)
  - OEDEMA PERIPHERAL [None]
  - ANAEMIA [None]
  - SWELLING FACE [None]
  - JOINT SWELLING [None]
  - EYE SWELLING [None]
